FAERS Safety Report 4337264-9 (Version None)
Quarter: 2004Q2

REPORT INFORMATION
  Report Type: 
  Country: None (occurrence: None)
  Receive Date: 20040413
  Receipt Date: 20040326
  Transmission Date: 20050107
  Serious: Yes (Hospitalization)
  Sender: FDA-Public Use
  Company Number: US-BRISTOL-MYERS SQUIBB COMPANY-12543625

PATIENT
  Age: 79 Year
  Sex: Female

DRUGS (9)
  1. TEQUIN [Suspect]
     Indication: UPPER RESPIRATORY TRACT INFECTION
     Route: 048
     Dates: start: 20040301, end: 20040301
  2. PREDNISONE [Concomitant]
  3. ACCOLATE [Concomitant]
  4. LASIX [Concomitant]
  5. POTASSIUM [Concomitant]
  6. AZMACORT [Concomitant]
  7. AMIODARONE HCL [Concomitant]
  8. ZOLOFT [Concomitant]
  9. MAVIK [Concomitant]

REACTIONS (1)
  - HYPOGLYCAEMIA [None]
